FAERS Safety Report 23590648 (Version 1)
Quarter: 2024Q1

REPORT INFORMATION
  Report Type: Spontaneous
  Country: US (occurrence: US)
  Receive Date: 20240304
  Receipt Date: 20240304
  Transmission Date: 20240410
  Serious: Yes (Hospitalization, Other)
  Sender: FDA-Public Use
  Company Number: US-LUPIN PHARMACEUTICALS INC.-2024-01516

PATIENT
  Age: 2 Year
  Sex: Male

DRUGS (24)
  1. HYDROCORTISONE [Suspect]
     Active Substance: HYDROCORTISONE
     Indication: Haemophagocytic lymphohistiocytosis
     Dosage: 5 MG, BID
     Route: 065
  2. CYCLOSPORINE [Suspect]
     Active Substance: CYCLOSPORINE
     Indication: Haemophagocytic lymphohistiocytosis
     Dosage: UNK
     Route: 065
  3. ETOPOSIDE [Suspect]
     Active Substance: ETOPOSIDE
     Indication: Haemophagocytic lymphohistiocytosis
     Dosage: 150 MILLIGRAM/SQ. METER, FOR 8 DOSES
     Route: 065
  4. PENTAMIDINE [Suspect]
     Active Substance: PENTAMIDINE
     Indication: Antifungal prophylaxis
     Dosage: UNK, INHALED PENTAMIDINE NEBULIZED
  5. TACROLIMUS [Concomitant]
     Active Substance: TACROLIMUS
     Indication: Haemophagocytic lymphohistiocytosis
     Dosage: 0.17 MILLIGRAM/KILOGRAM, QD
     Route: 048
  6. TACROLIMUS [Concomitant]
     Active Substance: TACROLIMUS
     Dosage: 0.03 MILLIGRAM/KILOGRAM, QD
     Route: 048
  7. METHYLPREDNISOLONE [Concomitant]
     Active Substance: METHYLPREDNISOLONE
     Indication: Haemophagocytic lymphohistiocytosis
     Dosage: 10 MILLIGRAM/KILOGRAM, QD
     Route: 042
  8. DEXAMETHASONE [Concomitant]
     Active Substance: DEXAMETHASONE
     Indication: Haemophagocytic lymphohistiocytosis
     Dosage: 1.5 MILLIGRAM/KILOGRAM, QD
     Route: 042
  9. PREDNISOLONE [Concomitant]
     Active Substance: PREDNISOLONE
     Indication: Haemophagocytic lymphohistiocytosis
     Dosage: 2 MILLIGRAM/KILOGRAM, QD
     Route: 065
  10. ANAKINRA [Concomitant]
     Active Substance: ANAKINRA
     Indication: Haemophagocytic lymphohistiocytosis
     Dosage: UNK
     Route: 042
  11. ANAKINRA [Concomitant]
     Active Substance: ANAKINRA
     Dosage: 25 MILLIGRAM/KILOGRAM, QD
     Route: 042
  12. ANAKINRA [Concomitant]
     Active Substance: ANAKINRA
     Dosage: 37.5 MILLIGRAM/KILOGRAM, QD
     Route: 042
  13. ANAKINRA [Concomitant]
     Active Substance: ANAKINRA
     Dosage: 46 MILLIGRAM/KILOGRAM, QD
     Route: 042
  14. ANAKINRA [Concomitant]
     Active Substance: ANAKINRA
     Dosage: 2 MILLIGRAM/KILOGRAM, QD
     Route: 042
  15. ANAKINRA [Concomitant]
     Active Substance: ANAKINRA
     Dosage: UNK
  16. EMAPALUMAB [Concomitant]
     Active Substance: EMAPALUMAB
     Indication: Haemophagocytic lymphohistiocytosis
     Dosage: 1 MILLIGRAM/KILOGRAM, TWICE IN A WEEK
     Route: 065
  17. EMAPALUMAB [Concomitant]
     Active Substance: EMAPALUMAB
     Dosage: 3 MILLIGRAM/KILOGRAM, TWICE IN A WEEK
     Route: 065
  18. EMAPALUMAB [Concomitant]
     Active Substance: EMAPALUMAB
     Dosage: 6 MILLIGRAM/KILOGRAM. TWICE IN A WEEK
     Route: 065
  19. EMAPALUMAB [Concomitant]
     Active Substance: EMAPALUMAB
     Dosage: 10 MILLIGRAM/KILOGRAM, TWICE IN A WEEK
     Route: 065
  20. FUROSEMIDE [Concomitant]
     Active Substance: FUROSEMIDE
     Indication: Pulmonary oedema
     Dosage: UNK
     Route: 065
  21. CIDOFOVIR [Concomitant]
     Active Substance: CIDOFOVIR
     Indication: Adenovirus infection
     Dosage: UNK
     Route: 042
  22. HUMAN IMMUNOGLOBULIN G [Concomitant]
     Active Substance: HUMAN IMMUNOGLOBULIN G
     Indication: Immune system disorder
     Dosage: UNK, FIVE DOSES
     Route: 042
  23. POSACONAZOLE [Concomitant]
     Active Substance: POSACONAZOLE
     Indication: Aspergillus infection
     Dosage: UNK
     Route: 065
  24. VORICONAZOLE [Concomitant]
     Active Substance: VORICONAZOLE
     Indication: Aspergillus infection
     Dosage: UNK
     Route: 065

REACTIONS (2)
  - Pneumocystis jirovecii pneumonia [Recovered/Resolved]
  - Off label use [Unknown]
